FAERS Safety Report 17877273 (Version 2)
Quarter: 2020Q3

REPORT INFORMATION
  Report Type: Report from Study
  Country: JP (occurrence: JP)
  Receive Date: 20200609
  Receipt Date: 20200811
  Transmission Date: 20201103
  Serious: Yes (Hospitalization)
  Sender: FDA-Public Use
  Company Number: JP-ASTRAZENECA-2020SE73055

PATIENT
  Age: 17986 Day
  Sex: Female

DRUGS (16)
  1. CISPLATIN. [Suspect]
     Active Substance: CISPLATIN
     Indication: CERVIX CARCINOMA
     Dosage: 40.0MG/M2 ONCE/SINGLE ADMINISTRATION
     Route: 065
     Dates: start: 20200304, end: 20200304
  2. BUDESONIDE FORMOTEROL FUMERATE [Concomitant]
     Indication: ASTHMA
     Dosage: 164.5UG AS REQUIRED
     Route: 055
  3. LOXOPROFEN SODIUM HYDRATE [Concomitant]
     Active Substance: LOXOPROFEN SODIUM DIHYDRATE
     Indication: PERIODONTITIS
     Dosage: 60.0MG AS REQUIRED
     Route: 055
     Dates: start: 20200303
  4. LOPERAMIDE HYDROCHLORIDE. [Concomitant]
     Active Substance: LOPERAMIDE HYDROCHLORIDE
     Indication: DIARRHOEA
     Dosage: 1.0MG AS REQUIRED
     Route: 048
     Dates: start: 20200407, end: 20200425
  5. DURVALUMAB. [Suspect]
     Active Substance: DURVALUMAB
     Indication: CERVIX CARCINOMA
     Dosage: 1500.0MG ONCE/SINGLE ADMINISTRATION
     Route: 042
     Dates: start: 20200304, end: 20200304
  6. DURVALUMAB. [Suspect]
     Active Substance: DURVALUMAB
     Indication: CERVIX CARCINOMA
     Dosage: 1500.0MG ONCE/SINGLE ADMINISTRATION
     Route: 042
     Dates: start: 20200401, end: 20200401
  7. CISPLATIN. [Suspect]
     Active Substance: CISPLATIN
     Indication: CERVIX CARCINOMA
     Dosage: 40.0MG/M2 ONCE/SINGLE ADMINISTRATION
     Route: 065
     Dates: start: 20200401, end: 20200401
  8. CISPLATIN. [Suspect]
     Active Substance: CISPLATIN
     Indication: CERVIX CARCINOMA
     Dosage: 40.0MG/M2 ONCE/SINGLE ADMINISTRATION
     Route: 065
     Dates: start: 20200318, end: 20200318
  9. LOPERAMIDE HYDROCHLORIDE. [Concomitant]
     Active Substance: LOPERAMIDE HYDROCHLORIDE
     Indication: DIARRHOEA
     Dosage: 2.0MG AS REQUIRED
     Route: 048
     Dates: start: 20200419, end: 20200425
  10. DURVALUMAB. [Suspect]
     Active Substance: DURVALUMAB
     Indication: CERVIX CARCINOMA
     Dosage: 1500.0MG ONCE/SINGLE ADMINISTRATION
     Route: 042
     Dates: start: 20200428, end: 20200428
  11. BRACHYTHERAPY [Suspect]
     Active Substance: RADIATION THERAPY
     Indication: CERVIX CARCINOMA
     Route: 065
  12. CISPLATIN. [Suspect]
     Active Substance: CISPLATIN
     Indication: CERVIX CARCINOMA
     Dosage: 40.0MG/M2 ONCE/SINGLE ADMINISTRATION
     Route: 065
     Dates: start: 20200325, end: 20200325
  13. CISPLATIN. [Suspect]
     Active Substance: CISPLATIN
     Indication: CERVIX CARCINOMA
     Dosage: 40.0MG/M2 ONCE/SINGLE ADMINISTRATION
     Route: 065
     Dates: start: 20200311, end: 20200311
  14. LOPERAMIDE HYDROCHLORIDE. [Concomitant]
     Active Substance: LOPERAMIDE HYDROCHLORIDE
     Indication: DIARRHOEA
     Dosage: 3.0MG AS REQUIRED
     Route: 048
     Dates: start: 20200420
  15. EBRT [Suspect]
     Active Substance: RADIATION THERAPY
     Indication: CERVIX CARCINOMA
     Route: 065
  16. LOXOPROFEN SODIUM HYDRATE [Concomitant]
     Active Substance: LOXOPROFEN SODIUM DIHYDRATE
     Indication: PERIODONTITIS
     Dosage: 60.0MG AS REQUIRED
     Route: 055
     Dates: start: 20200303

REACTIONS (1)
  - Enterocolitis [Not Recovered/Not Resolved]

NARRATIVE: CASE EVENT DATE: 20200529
